FAERS Safety Report 5643396-5 (Version None)
Quarter: 2008Q1

REPORT INFORMATION
  Report Type: 
  Country: None (occurrence: None)
  Receive Date: 20080228
  Receipt Date: 20080219
  Transmission Date: 20080703
  Serious: Yes (Death)
  Sender: FDA-Public Use
  Company Number: DE-WYE-H02715308

PATIENT
  Sex: Female

DRUGS (32)
  1. PANTOZOL [Suspect]
     Route: 048
     Dates: start: 20050617, end: 20050628
  2. PANTOZOL [Suspect]
     Route: 048
     Dates: start: 20050714
  3. ACERBON ^ICI^ [Suspect]
     Indication: CARDIAC FAILURE
     Route: 048
     Dates: start: 20050628
  4. BELOC-ZOC COMP [Suspect]
     Indication: CARDIAC FAILURE
     Route: 048
     Dates: start: 20040101
  5. BELOC-ZOC COMP [Suspect]
     Route: 048
  6. TOREM [Suspect]
     Indication: CARDIAC FAILURE
     Route: 048
     Dates: start: 20040101
  7. TOREM [Suspect]
     Route: 048
  8. TRENTAL [Suspect]
     Indication: CARDIOVASCULAR DISORDER
     Route: 048
     Dates: start: 20050609, end: 20050722
  9. MOVICOL [Suspect]
     Indication: CONSTIPATION
     Dosage: ^DF^
     Dates: start: 20050716
  10. HEPARIN [Suspect]
     Indication: THROMBOSIS PROPHYLAXIS
     Dosage: 7500 IU 2/DAY
     Route: 058
     Dates: start: 20050628
  11. ASPIRIN [Suspect]
     Indication: ATRIAL FIBRILLATION
     Route: 048
     Dates: start: 20050617, end: 20050722
  12. ASPIRIN [Suspect]
     Indication: ATRIAL FLUTTER
  13. LACTULOSE [Suspect]
     Indication: CONSTIPATION
     Route: 048
     Dates: start: 20050701, end: 20050715
  14. ALLOPURINOL [Suspect]
     Indication: HYPERURICAEMIA
     Route: 048
     Dates: start: 20050701
  15. FAVISTAN [Suspect]
     Indication: HYPERTHYROIDISM
     Route: 048
  16. FAVISTAN [Suspect]
     Route: 048
  17. NOVALGIN [Suspect]
     Indication: PAIN
     Route: 048
     Dates: start: 20050711, end: 20050711
  18. NOVALGIN [Suspect]
     Route: 048
     Dates: start: 20050713, end: 20050713
  19. CIPRAMIL [Suspect]
     Indication: DEPRESSION
     Route: 048
     Dates: start: 20050712
  20. METOCLOPRAMIDE [Suspect]
     Indication: NAUSEA
     Dosage: ^DF^
     Route: 054
     Dates: start: 20050717, end: 20050718
  21. METOCLOPRAMIDE [Suspect]
     Indication: VOMITING
  22. STEROFUNDIN [Suspect]
     Indication: HYPOVOLAEMIA
     Dosage: UNSPECIFIED DOSE
     Route: 042
     Dates: start: 20050717, end: 20050717
  23. STEROFUNDIN [Suspect]
     Dosage: UNSPECIFIED DOSE
     Route: 042
     Dates: start: 20050719, end: 20050720
  24. STEROFUNDIN [Suspect]
     Dosage: UNSPECIFIED DOSE
     Route: 042
     Dates: start: 20050722, end: 20050722
  25. STANGYL [Suspect]
     Indication: DEPRESSION
     Route: 048
     Dates: start: 20050718, end: 20050721
  26. SODIUM CHLORIDE INJ [Suspect]
     Indication: HYPEROSMOLAR STATE
     Route: 048
     Dates: start: 20050720
  27. SODIUM CHLORIDE INJ [Suspect]
     Indication: HYPERNATRAEMIA
  28. NITROGLYCERIN [Suspect]
     Indication: HYPERTENSION
     Route: 048
     Dates: start: 20050722, end: 20050722
  29. ACETAMINOPHEN [Suspect]
     Indication: PYREXIA
     Route: 054
     Dates: start: 20050723, end: 20050723
  30. AGGRENOX [Suspect]
     Indication: ATRIAL FIBRILLATION
     Route: 048
     Dates: start: 20050723, end: 20050723
  31. AGGRENOX [Suspect]
     Indication: ATRIAL FLUTTER
  32. DIGIMERCK [Suspect]
     Indication: CARDIAC FAILURE
     Route: 048
     Dates: start: 20040101, end: 20050722

REACTIONS (1)
  - STEVENS-JOHNSON SYNDROME [None]
